FAERS Safety Report 12615677 (Version 1)
Quarter: 2016Q3

REPORT INFORMATION
  Report Type: Spontaneous
  Country: US (occurrence: US)
  Receive Date: 20160802
  Receipt Date: 20160802
  Transmission Date: 20161109
  Serious: No
  Sender: FDA-Public Use
  Company Number: US-IMPAX LABORATORIES, INC-2016-IPXL-00560

PATIENT
  Age: 67 Year
  Sex: Female
  Weight: 77 kg

DRUGS (5)
  1. RYTARY [Suspect]
     Active Substance: CARBIDOPA\LEVODOPA
     Dosage: (23.75/95 MG) 2 CAPSULE TWICE DAILY
     Route: 048
     Dates: start: 20160522, end: 20160523
  2. RYTARY [Suspect]
     Active Substance: CARBIDOPA\LEVODOPA
     Dosage: (23.75/95 MG) 3 CAPSULE TWICE DAILY
     Route: 048
     Dates: start: 20160522, end: 20160523
  3. RYTARY [Suspect]
     Active Substance: CARBIDOPA\LEVODOPA
     Indication: PARKINSON^S DISEASE
     Dosage: (23.75/95 MG) 2 CAPSULE TWICE DAILY
     Route: 048
     Dates: start: 20160517, end: 20160522
  4. AZILECT [Concomitant]
     Active Substance: RASAGILINE MESYLATE
     Indication: PARKINSON^S DISEASE
     Dosage: 1 MG,7 OR 8 AM IN THE MORNING
     Route: 065
     Dates: start: 201403
  5. VALIUM [Concomitant]
     Active Substance: DIAZEPAM
     Indication: BACK PAIN
     Dosage: (5 MG)
     Route: 065
     Dates: start: 2015

REACTIONS (3)
  - Constipation [Not Recovered/Not Resolved]
  - Sleep disorder [Not Recovered/Not Resolved]
  - Urticaria [Not Recovered/Not Resolved]

NARRATIVE: CASE EVENT DATE: 20160523
